FAERS Safety Report 14498393 (Version 3)
Quarter: 2019Q3

REPORT INFORMATION
  Report Type: Other
  Country: FR (occurrence: FR)
  Receive Date: 20180207
  Receipt Date: 20190805
  Transmission Date: 20191004
  Serious: Yes (Hospitalization, Disabling)
  Sender: FDA-Public Use
  Company Number: FR-CELLTRION INC.-2018FR017674

PATIENT

DRUGS (4)
  1. INFLIXIMAB (UNKNOWN) [Suspect]
     Active Substance: INFLIXIMAB
     Indication: ACUTE GRAFT VERSUS HOST DISEASE
     Dosage: 530 MG, PER WEEK
     Route: 048
     Dates: start: 20171108
  2. MYCOPHENOLATE MOFETIL. [Concomitant]
     Active Substance: MYCOPHENOLATE MOFETIL
     Indication: PROPHYLAXIS
     Dosage: 15 MG/KG, TID
     Route: 048
     Dates: start: 20171018
  3. INC424 [Suspect]
     Active Substance: RUXOLITINIB
     Indication: ACUTE GRAFT VERSUS HOST DISEASE
     Dosage: UNK ()
     Route: 048
  4. CICLOSPORIN [Suspect]
     Active Substance: CYCLOSPORINE
     Indication: PRODUCT USED FOR UNKNOWN INDICATION
     Dosage: 50 MG, QD
     Route: 048
     Dates: start: 20171107

REACTIONS (5)
  - Product use issue [Unknown]
  - Renal failure [Recovered/Resolved]
  - Product use in unapproved indication [Unknown]
  - Urinary bladder haemorrhage [Recovered/Resolved]
  - Urinary tract infection viral [Recovered/Resolved]

NARRATIVE: CASE EVENT DATE: 20171204
